FAERS Safety Report 8883731 (Version 1)
Quarter: 2012Q4

REPORT INFORMATION
  Report Type: 
  Country: US (occurrence: US)
  Receive Date: 20121102
  Receipt Date: 20121102
  Transmission Date: 20130627
  Serious: No
  Sender: FDA-Public Use
  Company Number: US-ASTRAZENECA-2011SE73849

PATIENT
  Sex: Male
  Weight: 90.7 kg

DRUGS (4)
  1. CRESTOR [Suspect]
     Indication: BLOOD CHOLESTEROL INCREASED
     Route: 048
     Dates: start: 201106
  2. VITAMINS [Concomitant]
     Indication: VITAMIN SUPPLEMENTATION
  3. COQ10 [Concomitant]
     Indication: ENZYME SUPPLEMENTATION
  4. FISH OIL [Concomitant]
     Indication: SUPPLEMENTATION THERAPY

REACTIONS (3)
  - Regurgitation [Unknown]
  - Plague [Unknown]
  - Gastrointestinal sounds abnormal [Unknown]
